FAERS Safety Report 6710129-0 (Version None)
Quarter: 2010Q2

REPORT INFORMATION
  Report Type: 
  Country: None (occurrence: None)
  Receive Date: 20100430
  Receipt Date: 20100422
  Transmission Date: 20101027
  Serious: Yes (Congenital Anomaly)
  Sender: FDA-Public Use
  Company Number: LEO-2010-00103

PATIENT
  Sex: Male

DRUGS (19)
  1. INNOHEP [Suspect]
     Dosage: TRANSPLACENTAL
     Route: 064
     Dates: start: 20060209, end: 20061001
  2. WARFARIN SODIUM [Concomitant]
  3. RANITIDINE [Concomitant]
  4. STEMETIL (PROCHLORPERAZINE) [Concomitant]
  5. MEPERIDINE HCL [Concomitant]
  6. MAXOLON [Concomitant]
  7. GLYCERINE SUPPOSITORIES (GLYCEROL) [Concomitant]
  8. ONDANSETRON [Concomitant]
  9. THIOPENTAL SODIUM [Concomitant]
  10. SUXAMETHONIUM (SUXAMETHONIUM) [Concomitant]
  11. AUGMENTIN '125' [Concomitant]
  12. OXYTOCIN (OXYTOCIN0 [Concomitant]
  13. MORPHINE [Concomitant]
  14. FENTANYL-100 [Concomitant]
  15. ATRACURIUM BESYLATE [Concomitant]
  16. GLYCOPYRRONIUM (GLYCOPYRRONIUM) [Concomitant]
  17. NEOSTIGMINE (NEOSTIGMINE) [Concomitant]
  18. ACETAMINOPHEN [Concomitant]
  19. SODIUM CITRATE [Concomitant]

REACTIONS (4)
  - APGAR SCORE LOW [None]
  - CAESAREAN SECTION [None]
  - MATERNAL DRUGS AFFECTING FOETUS [None]
  - PYELOCALIECTASIS [None]
